FAERS Safety Report 8767422 (Version 1)
Quarter: 2012Q4

REPORT INFORMATION
  Report Type: 
  Country: US (occurrence: US)
  Receive Date: 20120904
  Receipt Date: 20120904
  Transmission Date: 20130627
  Serious: Yes (Other)
  Sender: FDA-Public Use
  Company Number: US-PFIZER INC-2012214137

PATIENT
  Age: 75 Year
  Sex: Female
  Weight: 76.64 kg

DRUGS (3)
  1. ATORVASTATIN CALCIUM [Suspect]
     Indication: BLOOD CHOLESTEROL INCREASED
     Dosage: UNK
     Dates: start: 201109
  2. ATORVASTATIN CALCIUM [Suspect]
     Dosage: 20 mg, daily
     Dates: start: 201207
  3. AVAPRO [Concomitant]
     Indication: HYPERTENSION
     Dosage: 300 mg, daily
     Route: 048

REACTIONS (2)
  - Aphagia [Not Recovered/Not Resolved]
  - Gastrooesophageal reflux disease [Not Recovered/Not Resolved]
